FAERS Safety Report 4445557-X (Version None)
Quarter: 2004Q3

REPORT INFORMATION
  Report Type: 
  Country: None (occurrence: None)
  Receive Date: 20040806
  Receipt Date: 20040416
  Transmission Date: 20050211
  Serious: No
  Sender: FDA-Public Use
  Company Number: 200403009

PATIENT
  Sex: Female

DRUGS (1)
  1. ELESTAT [Suspect]
     Dates: start: 20040405

REACTIONS (2)
  - BLOOD PRESSURE INCREASED [None]
  - EYE REDNESS [None]
